FAERS Safety Report 14819178 (Version 1)
Quarter: 2018Q2

REPORT INFORMATION
  Report Type: Spontaneous
  Country: ES (occurrence: ES)
  Receive Date: 20180427
  Receipt Date: 20180427
  Transmission Date: 20180711
  Serious: Yes (Hospitalization)
  Sender: FDA-Public Use
  Company Number: ES-TEVA-2018-ES-886768

PATIENT
  Age: 67 Year
  Sex: Female

DRUGS (3)
  1. BRINTELLIX 20 MG COMPRIMIDOS RECUBIERTOS CON PELICULA 28 COMPRIMIDOS [Concomitant]
     Route: 048
  2. ADIRO 300 [Interacting]
     Active Substance: ASPIRIN
     Indication: INTRACRANIAL ANEURYSM
     Dosage: 300MG/24H
     Route: 048
     Dates: start: 2015, end: 20171228
  3. AMOXICILLIN (108A) [Suspect]
     Active Substance: AMOXICILLIN
     Indication: PHARYNGITIS BACTERIAL
     Dosage: 1000MG/8H
     Route: 048
     Dates: start: 20171218, end: 20171224

REACTIONS (2)
  - Intra-abdominal haematoma [Recovering/Resolving]
  - Drug interaction [Unknown]

NARRATIVE: CASE EVENT DATE: 20171227
